FAERS Safety Report 9507955 (Version 1)
Quarter: 2013Q1

REPORT INFORMATION
  Report Type: Spontaneous
  Country: US (occurrence: None)
  Receive Date: 20130305
  Receipt Date: 20130305
  Transmission Date: 20140127
  Serious: Yes (Other)
  Sender: FDA-Public Use
  Company Number: 163-21880-12051898

PATIENT
  Age: 69 Year
  Sex: Male
  Weight: 99.79 kg

DRUGS (2)
  1. REVLIMID [Suspect]
     Indication: PLASMA CELL MYELOMA
     Dosage: 25 MG, DAILY FOR 21 DAYS, PO
     Route: 048
     Dates: start: 20100607
  2. MULTIVITAMINS (MULTIVITAMINS) (UNKNOWN) [Concomitant]

REACTIONS (1)
  - Thrombosis [None]
